FAERS Safety Report 7485162-4 (Version None)
Quarter: 2011Q2

REPORT INFORMATION
  Report Type: 
  Country: None (occurrence: None)
  Receive Date: 20110517
  Receipt Date: 20110511
  Transmission Date: 20111010
  Serious: Yes (Hospitalization)
  Sender: FDA-Public Use
  Company Number: SK-ROCHE-776560

PATIENT
  Sex: Female

DRUGS (3)
  1. CAPECITABINE [Suspect]
     Dosage: INTERRUPTED
     Route: 065
     Dates: start: 20100125
  2. CAPECITABINE [Suspect]
     Dosage: DOSE LEVEL 100 %, LAST DOSE PRIOR TO SAE 22 MARCH 2010, 50 %
     Route: 065
     Dates: end: 20100329
  3. BEVACIZUMAB [Suspect]
     Dosage: LAST DOSE PRIOR TO SAE 08 MARCH 20102
     Route: 065
     Dates: start: 20100125, end: 20100329

REACTIONS (1)
  - HYPERCALCAEMIA [None]
